FAERS Safety Report 9168138 (Version 1)
Quarter: 2013Q1

REPORT INFORMATION
  Report Type: Spontaneous
  Country: AT (occurrence: None)
  Receive Date: 20130307
  Receipt Date: 20130307
  Transmission Date: 20140127
  Serious: Yes (Other)
  Sender: FDA-Public Use
  Company Number: SYM-2013-01275

PATIENT
  Age: 56 Year
  Sex: Female

DRUGS (9)
  1. WELLBUTRIN XR [Suspect]
     Indication: PRODUCT USED FOR UNKNOWN INDICATION
     Dates: start: 20130109, end: 20130118
  2. LYRICA [Suspect]
     Indication: PRODUCT USED FOR UNKNOWN INDICATION
     Dates: start: 201212, end: 20130108
  3. SIMETHICONE (SIMETICONE) (SIMETICONE) [Concomitant]
  4. OESTRADIOL VALERATE (ESTRADIOL VALERATE) (ESTRADIOL VALERATE) [Concomitant]
  5. PANTOPRAZOLE (PANTOPRAZOLE) (PANTOPRAZOLE) [Concomitant]
  6. COLECALCIFEROL (COLECALCIFEROL) (COLECALCIFEROL) [Concomitant]
  7. NEBIVOLOL HCL (NEBIVOLOL HYDROCHLORIDE) (NEBIVOLOL HYDROCHLORIDE) [Concomitant]
  8. HYDROCHLOROTHIAZ+OLMESART (BENICAR HCT) (HYDROCHLOROTHIAZIDE, OLMESARTAN MEDOXOMIL) [Concomitant]
  9. MAGNOSOLV-GRANULAT (OTHER THERAPEUTIC PRODUCTS) (NULL) [Concomitant]

REACTIONS (2)
  - Dry mouth [None]
  - Dysgeusia [None]
